FAERS Safety Report 13540587 (Version 1)
Quarter: 2017Q2

REPORT INFORMATION
  Report Type: Spontaneous
  Country: US (occurrence: US)
  Receive Date: 20170512
  Receipt Date: 20170512
  Transmission Date: 20170830
  Serious: No
  Sender: FDA-Public Use
  Company Number: US-ELI_LILLY_AND_COMPANY-US201705001777

PATIENT
  Sex: Male

DRUGS (2)
  1. CYMBALTA [Suspect]
     Active Substance: DULOXETINE HYDROCHLORIDE
     Indication: PRODUCT USED FOR UNKNOWN INDICATION
     Dosage: UNK, UNKNOWN
     Route: 048
  2. THIOLA [Concomitant]
     Active Substance: TIOPRONIN
     Indication: CYSTINURIA
     Dosage: 100 MG, BID

REACTIONS (4)
  - Blood glucose increased [Unknown]
  - Neuropathy peripheral [Unknown]
  - Burning sensation [Unknown]
  - Sleep disorder [Unknown]
